FAERS Safety Report 19508690 (Version 2)
Quarter: 2021Q3

REPORT INFORMATION
  Report Type: Report from Study
  Country: None (occurrence: CO)
  Receive Date: 20210709
  Receipt Date: 20210809
  Transmission Date: 20211014
  Serious: Yes (Disabling, Other)
  Sender: FDA-Public Use
  Company Number: CO-ABBVIE-21K-036-3737619-00

PATIENT
  Sex: Female
  Weight: 68 kg

DRUGS (4)
  1. HUMIRA [Suspect]
     Active Substance: ADALIMUMAB
     Indication: RHEUMATOID ARTHRITIS
     Route: 058
     Dates: start: 20170307
  2. METHOTREXATE. [Concomitant]
     Active Substance: METHOTREXATE
     Indication: RHEUMATOID ARTHRITIS
     Route: 058
  3. CHLORPHENIRAMINE. [Concomitant]
     Active Substance: CHLORPHENIRAMINE
     Indication: PRODUCT USED FOR UNKNOWN INDICATION
  4. HUMIRA [Suspect]
     Active Substance: ADALIMUMAB
     Indication: RHEUMATOID ARTHRITIS
     Route: 058

REACTIONS (15)
  - Arthralgia [Recovered/Resolved]
  - Hypersensitivity [Recovering/Resolving]
  - Asphyxia [Recovering/Resolving]
  - Pharyngitis [Recovered/Resolved]
  - Stress [Recovering/Resolving]
  - Amnesia [Not Recovered/Not Resolved]
  - Feeling hot [Recovered/Resolved]
  - Heavy menstrual bleeding [Recovering/Resolving]
  - Pain [Recovered/Resolved]
  - Erythema [Recovering/Resolving]
  - Pruritus [Recovering/Resolving]
  - Tonsillar disorder [Recovered/Resolved]
  - Hypertension [Recovered/Resolved]
  - Influenza [Recovered/Resolved]
  - Myalgia [Recovered/Resolved]

NARRATIVE: CASE EVENT DATE: 2019
